FAERS Safety Report 7027155-7 (Version None)
Quarter: 2010Q4

REPORT INFORMATION
  Report Type: 
  Country: None (occurrence: None)
  Receive Date: 20101004
  Receipt Date: 20101001
  Transmission Date: 20110411
  Serious: Yes (Hospitalization, Other)
  Sender: FDA-Public Use
  Company Number: IT-BRISTOL-MYERS SQUIBB COMPANY-15300460

PATIENT
  Age: 67 Year
  Sex: Female

DRUGS (3)
  1. COUMADIN [Suspect]
     Indication: AORTIC VALVE REPLACEMENT
     Dosage: 1 DF: 1 POSOLOGIC UNIT;THERAPY SINCE 30 YEARS.
  2. LASIX [Concomitant]
     Indication: HYPERTENSION
  3. MODURETIC TABS 5MG/50MG [Concomitant]
     Dosage: 1 DF: 0.5 POSOLOGIC UNIT.
     Route: 048

REACTIONS (2)
  - EPISTAXIS [None]
  - HYPERTENSIVE CRISIS [None]
